FAERS Safety Report 5822808-8 (Version None)
Quarter: 2008Q3

REPORT INFORMATION
  Report Type: 
  Country: None (occurrence: None)
  Receive Date: 20080718
  Receipt Date: 20080221
  Transmission Date: 20090109
  Serious: Yes (Hospitalization)
  Sender: FDA-Public Use
  Company Number: 2008PV000046

PATIENT
  Age: 69 Year
  Sex: Female

DRUGS (2)
  1. DEPODUR [Suspect]
     Indication: POSTOPERATIVE ANALGESIA
     Dosage: 5 MG;1X;ED
     Route: 008
     Dates: start: 20071205, end: 20071205
  2. TRANSDERM SCOP [Suspect]
     Indication: NAUSEA
     Dosage: 1.5 MG;1X;TDER
     Route: 062
     Dates: start: 20071205, end: 20071205

REACTIONS (6)
  - APNOEA [None]
  - COMA [None]
  - DRUG INTERACTION [None]
  - HYPOXIA [None]
  - SEDATION [None]
  - SOMNOLENCE [None]
